FAERS Safety Report 6474550-0 (Version None)
Quarter: 2009Q4

REPORT INFORMATION
  Report Type: 
  Country: None (occurrence: None)
  Receive Date: 20091204
  Receipt Date: 20091202
  Transmission Date: 20100525
  Serious: Yes (Hospitalization)
  Sender: FDA-Public Use
  Company Number: PL-BAYER-200941441GPV

PATIENT
  Age: 53 Year
  Sex: Male

DRUGS (2)
  1. SORAFENIB [Suspect]
     Indication: DRUG USE FOR UNKNOWN INDICATION
     Dosage: TOTAL DAILY DOSE: 400 MG
     Route: 048
     Dates: start: 20081023, end: 20090716
  2. AMG386 OR PLACEBO [Suspect]
     Indication: METASTATIC NEOPLASM
     Route: 042
     Dates: start: 20081023, end: 20091112

REACTIONS (2)
  - INTRACARDIAC THROMBUS [None]
  - MYOCARDIAL INFARCTION [None]
